FAERS Safety Report 16720583 (Version 1)
Quarter: 2019Q3

REPORT INFORMATION
  Report Type: Report from Study
  Country: US (occurrence: US)
  Receive Date: 20190820
  Receipt Date: 20190820
  Transmission Date: 20191005
  Serious: Yes (Other)
  Sender: FDA-Public Use
  Company Number: US-SA-2018SA256014

PATIENT
  Age: 45 Year
  Sex: Female
  Weight: 77.11 kg

DRUGS (5)
  1. ALEMTUZUMAB [Suspect]
     Active Substance: ALEMTUZUMAB
     Dosage: 12 MG, QD
     Route: 041
     Dates: start: 20180912, end: 20180913
  2. LORAZEPAM. [Concomitant]
     Active Substance: LORAZEPAM
     Dosage: 0.5 MG, QD; PRN
     Route: 048
  3. ACYCLOVIR [ACICLOVIR] [Concomitant]
     Active Substance: ACYCLOVIR
     Dosage: 400 MG, QD
     Route: 048
  4. ALEMTUZUMAB [Suspect]
     Active Substance: ALEMTUZUMAB
     Indication: MULTIPLE SCLEROSIS
     Dosage: 12 MG
     Route: 041
     Dates: start: 20180827, end: 20180829
  5. ENOXAPARIN [ENOXAPARIN SODIUM] [Concomitant]
     Active Substance: ENOXAPARIN SODIUM
     Dosage: 1 DF, QD
     Route: 058

REACTIONS (12)
  - Temperature intolerance [Unknown]
  - Bacterial test positive [Unknown]
  - CD4 lymphocytes decreased [Unknown]
  - Mean platelet volume increased [Unknown]
  - Immunodeficiency [Unknown]
  - Nitrite urine present [Unknown]
  - Urine abnormality [Unknown]
  - White blood cells urine positive [Unknown]
  - Product use issue [Unknown]
  - Fatigue [Unknown]
  - Urinary sediment present [Unknown]
  - Urine leukocyte esterase positive [Unknown]

NARRATIVE: CASE EVENT DATE: 20190725
